FAERS Safety Report 10677017 (Version 2)
Quarter: 2014Q4

REPORT INFORMATION
  Report Type: Spontaneous
  Country: BE (occurrence: BE)
  Receive Date: 20141226
  Receipt Date: 20141226
  Transmission Date: 20150529
  Serious: Yes (Other)
  Sender: FDA-Public Use
  Company Number: BE-SA-2014SA144962

PATIENT

DRUGS (1)
  1. AUBAGIO [Suspect]
     Active Substance: TERIFLUNOMIDE
     Indication: MULTIPLE SCLEROSIS
     Route: 048
     Dates: start: 20140915, end: 20141205

REACTIONS (6)
  - Transaminases increased [Recovered/Resolved]
  - Rash [Unknown]
  - Enzyme abnormality [Unknown]
  - Gamma-glutamyltransferase increased [Recovered/Resolved]
  - Toxic skin eruption [Unknown]
  - Pruritus [Unknown]

NARRATIVE: CASE EVENT DATE: 20141017
